FAERS Safety Report 8309414-0 (Version None)
Quarter: 2012Q2

REPORT INFORMATION
  Report Type: 
  Country: None (occurrence: None)
  Receive Date: 20120420
  Receipt Date: 20120412
  Transmission Date: 20120825
  Serious: Yes (Other)
  Sender: FDA-Public Use
  Company Number: ADR-2012-00726

PATIENT
  Sex: Female

DRUGS (2)
  1. LIORESAL [Suspect]
     Indication: MUSCLE SPASTICITY
  2. LIORESAL [Suspect]
     Indication: MULTIPLE SCLEROSIS

REACTIONS (4)
  - IMPLANT SITE OEDEMA [None]
  - MEDICAL DEVICE COMPLICATION [None]
  - IMPLANT SITE EFFUSION [None]
  - THERAPEUTIC PRODUCT INEFFECTIVE [None]
